FAERS Safety Report 9486915 (Version 2)
Quarter: 2013Q3

REPORT INFORMATION
  Report Type: Spontaneous
  Country: GB (occurrence: None)
  Receive Date: 20130823
  Receipt Date: 20130904
  Transmission Date: 20140515
  Serious: Yes (Hospitalization)
  Sender: FDA-Public Use
  Company Number: AUR-APL-2013-06761

PATIENT
  Age: 49 Year
  Sex: Male

DRUGS (8)
  1. AMISULPRIDE [Suspect]
     Indication: PRODUCT USED FOR UNKNOWN INDICATION
     Dosage: (3150MG, TOTAL)
     Dates: start: 20130707, end: 20130707
  2. CITALOPRAM (CITALOPRAM) [Suspect]
     Dosage: (280MG, TOTAL)
     Dates: start: 20130707, end: 20130707
  3. METFORMIN (METFORMIN) [Suspect]
     Dosage: (10500 MG, TOTAL)
     Dates: start: 20130707, end: 20130707
  4. OMEPRAZOLE (OMEPRAZOLE) [Suspect]
     Dosage: (140MG, TOTAL)
     Dates: start: 20130707, end: 20130707
  5. ACAMPROSATE [Suspect]
     Dosage: (13860MG, TOTAL)
     Dates: start: 20130707, end: 20130707
  6. ASPIRIN (ACETYLSALICYLIC ACID) [Suspect]
     Dosage: (525MG, TOTAL)
     Dates: start: 20130707, end: 20130707
  7. ATORVASTATIN (ATORVASTATIN) [Suspect]
     Dosage: (210MG, TOTAL)
     Dates: start: 20130707, end: 20130707
  8. ZAPONEX [Suspect]
     Route: 048
     Dates: start: 20110802, end: 201308

REACTIONS (3)
  - Overdose [None]
  - Cardiovascular disorder [None]
  - Respiratory depression [None]
